FAERS Safety Report 7273598-6 (Version None)
Quarter: 2011Q1

REPORT INFORMATION
  Report Type: 
  Country: None (occurrence: None)
  Receive Date: 20110203
  Receipt Date: 20100830
  Transmission Date: 20110831
  Serious: No
  Sender: FDA-Public Use
  Company Number: US-ABBOTT-10P-163-0660267-00

PATIENT
  Sex: Female
  Weight: 65.83 kg

DRUGS (5)
  1. SYNTHROID [Suspect]
     Dates: start: 20091201
  2. ESTRACE [Concomitant]
     Indication: PRODUCT USED FOR UNKNOWN INDICATION
     Dosage: DAILY DOSE: 1MG
  3. SYNTHROID [Suspect]
     Indication: HYPOTHYROIDISM
     Dates: end: 20091201
  4. SYNTHROID [Suspect]
     Dates: start: 20100101, end: 20100901
  5. SYNTHROID [Suspect]
     Dates: start: 20100901

REACTIONS (4)
  - DRUG EFFECT DECREASED [None]
  - FEELING ABNORMAL [None]
  - ANXIETY [None]
  - INCORRECT DRUG DOSAGE FORM ADMINISTERED [None]
